FAERS Safety Report 4735482-9 (Version None)
Quarter: 2005Q3

REPORT INFORMATION
  Report Type: 
  Country: None (occurrence: None)
  Receive Date: 20050802
  Receipt Date: 20050718
  Transmission Date: 20060218
  Serious: Yes (Hospitalization)
  Sender: FDA-Public Use
  Company Number: 2005PV000284

PATIENT
  Age: 73 Year
  Sex: Male
  Weight: 65.7716 kg

DRUGS (11)
  1. BYETTA [Suspect]
     Indication: DIABETES MELLITUS NON-INSULIN-DEPENDENT
     Dosage: 5 UG; BID; SC
     Route: 058
     Dates: start: 20050701, end: 20050706
  2. PLAVIX [Concomitant]
  3. LOTREL [Concomitant]
  4. ATENOLOL [Concomitant]
  5. ACTOS [Concomitant]
  6. GLYSET [Concomitant]
  7. ECOTRIN [Concomitant]
  8. CRESTOR [Concomitant]
  9. GLYBURIDE [Concomitant]
  10. METFORMIN [Concomitant]
  11. AVAPRO [Concomitant]

REACTIONS (10)
  - ASTHENIA [None]
  - BLOOD GLUCOSE DECREASED [None]
  - DECREASED APPETITE [None]
  - DEHYDRATION [None]
  - DEREALISATION [None]
  - DIARRHOEA [None]
  - DRUG INEFFECTIVE [None]
  - EYE ROLLING [None]
  - LOSS OF CONSCIOUSNESS [None]
  - SYNCOPE [None]
